FAERS Safety Report 8229664-1 (Version None)
Quarter: 2012Q1

REPORT INFORMATION
  Report Type: 
  Country: None (occurrence: None)
  Receive Date: 20120322
  Receipt Date: 20120315
  Transmission Date: 20120608
  Serious: Yes (Other)
  Sender: FDA-Public Use
  Company Number: PHEH2012US006150

PATIENT
  Sex: Female

DRUGS (12)
  1. GILENYA [Suspect]
     Indication: MULTIPLE SCLEROSIS
     Dosage: 0.5 MG, QD
     Dates: start: 20110801
  2. CYMBALTA [Concomitant]
  3. MONONESSA [Concomitant]
  4. VICTOZA [Concomitant]
  5. SYNTHROID [Concomitant]
  6. ASPIRIN [Concomitant]
  7. ZYRTEC [Concomitant]
  8. AMBIEN [Concomitant]
  9. HYDRALAZINE HCL [Concomitant]
  10. ADVAIR DISKUS 100/50 [Concomitant]
  11. ABILIFY [Concomitant]
  12. SINGULAIR [Concomitant]

REACTIONS (4)
  - CEREBROVASCULAR ACCIDENT [None]
  - INFARCTION [None]
  - BLOOD PRESSURE DIASTOLIC INCREASED [None]
  - FATIGUE [None]
